FAERS Safety Report 8090801-3 (Version None)
Quarter: 2012Q1

REPORT INFORMATION
  Report Type: 
  Country: None (occurrence: None)
  Receive Date: 20120125
  Receipt Date: 20120109
  Transmission Date: 20120608
  Serious: Yes (Death, Hospitalization)
  Sender: FDA-Public Use
  Company Number: 2012-0077

PATIENT
  Sex: Female

DRUGS (1)
  1. SOMATULINE AUTOGEL 90 MG (SOMATULINE SR) (LANREOTIDE) (LANREOTIDE ACET [Suspect]
     Indication: NEUROENDOCRINE TUMOUR
     Dosage: 90 MG (90 MG, NOT REPORTED)
     Dates: start: 20110101

REACTIONS (2)
  - NEOPLASM PROGRESSION [None]
  - NEUROENDOCRINE TUMOUR [None]
